FAERS Safety Report 6993272-0 (Version None)
Quarter: 2010Q3

REPORT INFORMATION
  Report Type: 
  Country: None (occurrence: None)
  Receive Date: 20100917
  Receipt Date: 20100225
  Transmission Date: 20110219
  Serious: Yes (Hospitalization)
  Sender: FDA-Public Use
  Company Number: US-ASTRAZENECA-2010SE08264

PATIENT
  Age: 35 Year
  Sex: Male
  Weight: 92.5 kg

DRUGS (10)
  1. SEROQUEL [Suspect]
     Indication: DEPRESSION
     Route: 048
  2. CELEXA [Concomitant]
  3. CLONAZEPAM [Concomitant]
  4. LORTAB [Concomitant]
  5. TRAMADOL HCL [Concomitant]
  6. ALBUTEROL [Concomitant]
     Indication: ASTHMA
  7. ADVAIR DISKUS 100/50 [Concomitant]
     Indication: ASTHMA
  8. IBUPROFEN [Concomitant]
  9. TRILIPIX [Concomitant]
  10. FISH OIL [Concomitant]

REACTIONS (1)
  - PNEUMONIA [None]
